FAERS Safety Report 14922131 (Version 2)
Quarter: 2019Q3

REPORT INFORMATION
  Report Type: Report from Study
  Country: JP (occurrence: JP)
  Receive Date: 20180522
  Receipt Date: 20190923
  Transmission Date: 20191004
  Serious: Yes (Other)
  Sender: FDA-Public Use
  Company Number: JP-TEVA-803292ROM

PATIENT
  Age: 35 Year
  Sex: Female
  Weight: 55 kg

DRUGS (6)
  1. GLATIRAMER ACETATE. [Suspect]
     Active Substance: GLATIRAMER ACETATE
     Indication: RELAPSING-REMITTING MULTIPLE SCLEROSIS
     Dosage: 20 MILLIGRAM DAILY;
     Route: 058
     Dates: start: 20160816
  2. MYSLEE [Concomitant]
     Active Substance: ZOLPIDEM TARTRATE
     Dates: start: 20161019
  3. FOLIAMIN [Concomitant]
     Active Substance: FOLIC ACID
     Dates: start: 20170412
  4. SHAKUYAKUKANZOTO(GLYCYRRHIZA SPP. ROOT, PAEONIA LACTIFLORA ROOT) [Concomitant]
  5. METHYCOBAL [Concomitant]
     Active Substance: METHYLCOBALAMIN
     Dates: start: 20161005, end: 20161130
  6. TEGRETOL [Concomitant]
     Active Substance: CARBAMAZEPINE

REACTIONS (12)
  - Injection site induration [Recovered/Resolved]
  - Dyspnoea [Recovered/Resolved]
  - Palpitations [Recovered/Resolved]
  - Maternal exposure during pregnancy [Unknown]
  - Dyspnoea [Recovered/Resolved]
  - Neuropathy peripheral [Recovering/Resolving]
  - Injection site pruritus [Not Recovered/Not Resolved]
  - Pain [Recovering/Resolving]
  - Injection site pain [Recovered/Resolved]
  - Injection site swelling [Recovered/Resolved]
  - Injection site pain [Recovered/Resolved]
  - Palpitations [Recovered/Resolved]

NARRATIVE: CASE EVENT DATE: 20160816
